FAERS Safety Report 18526414 (Version 1)
Quarter: 2020Q4

REPORT INFORMATION
  Report Type: Spontaneous
  Country: AT (occurrence: AT)
  Receive Date: 20201120
  Receipt Date: 20201120
  Transmission Date: 20210114
  Serious: Yes (Death, Other)
  Sender: FDA-Public Use
  Company Number: AT-AMGEN-AUTSP2020188888

PATIENT
  Sex: Male

DRUGS (2)
  1. BLINCYTO [Suspect]
     Active Substance: BLINATUMOMAB
     Indication: ACUTE LYMPHOCYTIC LEUKAEMIA
     Dosage: 9 MICROGRAM, DAY 1-7
     Route: 065
     Dates: start: 20161108, end: 20161114
  2. BLINCYTO [Suspect]
     Active Substance: BLINATUMOMAB
     Dosage: 28 MICROGRAM, DAY 8
     Route: 065
     Dates: start: 20161115, end: 20161125

REACTIONS (6)
  - Death [Fatal]
  - Acute lymphocytic leukaemia [Unknown]
  - Tumour lysis syndrome [Unknown]
  - Pneumonia [Unknown]
  - Respiratory failure [Unknown]
  - General physical health deterioration [Unknown]

NARRATIVE: CASE EVENT DATE: 2016
